FAERS Safety Report 5109837-7 (Version None)
Quarter: 2006Q3

REPORT INFORMATION
  Report Type: 
  Country: None (occurrence: None)
  Receive Date: 20060918
  Receipt Date: 20060918
  Transmission Date: 20061208
  Serious: Yes (Other)
  Sender: FDA-Public Use
  Company Number: None

PATIENT
  Sex: Female
  Weight: 98.8842 kg

DRUGS (8)
  1. KETEK [Suspect]
     Indication: SINUSITIS
     Dates: start: 20060520, end: 20060524
  2. ALBUTEROL [Concomitant]
  3. LIPITOR [Concomitant]
  4. ECOTRIN [Concomitant]
  5. FOLIC ACID [Concomitant]
  6. ATENOLOL [Concomitant]
  7. ZETIA [Concomitant]
  8. WELCHOL [Concomitant]

REACTIONS (3)
  - ABDOMINAL PAIN [None]
  - CHEST PAIN [None]
  - HEPATIC ENZYME INCREASED [None]
